FAERS Safety Report 7228144-X (Version None)
Quarter: 2011Q1

REPORT INFORMATION
  Report Type: 
  Country: None (occurrence: None)
  Receive Date: 20110112
  Receipt Date: 20110112
  Transmission Date: 20110831
  Serious: Yes (Life-Threatening, Other)
  Sender: FDA-Public Use
  Company Number: None

PATIENT
  Sex: Male
  Weight: 81.1939 kg

DRUGS (6)
  1. EZ SMOKE [Suspect]
     Indication: LUNG DISORDER
     Dosage: 4 M
     Dates: start: 20100901
  2. EZ SMOKE [Suspect]
     Indication: OROPHARYNGEAL PAIN
     Dosage: 4 M
     Dates: start: 20100901
  3. EZ SMOKE [Suspect]
     Indication: PAIN
     Dosage: 4 M
     Dates: start: 20100901
  4. EZ SMOKE [Suspect]
     Indication: LUNG DISORDER
     Dosage: 4 M
     Dates: start: 20101001
  5. EZ SMOKE [Suspect]
     Indication: OROPHARYNGEAL PAIN
     Dosage: 4 M
     Dates: start: 20101001
  6. EZ SMOKE [Suspect]
     Indication: PAIN
     Dosage: 4 M
     Dates: start: 20101001

REACTIONS (3)
  - LUNG DISORDER [None]
  - OROPHARYNGEAL PAIN [None]
  - PAIN [None]
